FAERS Safety Report 4421215-2 (Version None)
Quarter: 2004Q3

REPORT INFORMATION
  Report Type: 
  Country: None (occurrence: None)
  Receive Date: 20040804
  Receipt Date: 20040712
  Transmission Date: 20050211
  Serious: Yes (Other)
  Sender: FDA-Public Use
  Company Number: FR_040704436

PATIENT
  Age: 45 Year
  Sex: Female

DRUGS (5)
  1. ZYPREXA [Suspect]
     Dosage: 20 MG DAY
     Dates: start: 20040201
  2. TEGRETOL [Concomitant]
  3. OXAZEPAM [Concomitant]
  4. ZOLOFT [Concomitant]
  5. IMOVANE (ZOPICLONE) [Concomitant]

REACTIONS (2)
  - ELECTROCARDIOGRAM QT CORRECTED INTERVAL PROLONGED [None]
  - ELECTROCARDIOGRAM QT PROLONGED [None]
